FAERS Safety Report 4805848-7 (Version None)
Quarter: 2005Q4

REPORT INFORMATION
  Report Type: 
  Country: None (occurrence: None)
  Receive Date: 20051021
  Receipt Date: 20051010
  Transmission Date: 20060501
  Serious: Yes (Hospitalization)
  Sender: FDA-Public Use
  Company Number: US-BRISTOL-MYERS SQUIBB COMPANY-13139910

PATIENT
  Age: 71 Year
  Sex: Female
  Weight: 58 kg

DRUGS (7)
  1. COUMADIN [Suspect]
     Indication: ATRIAL FIBRILLATION
     Dates: start: 19990501
  2. LANOXIN [Concomitant]
  3. CORGARD [Concomitant]
  4. MAXZIDE [Concomitant]
  5. NOLVADEX [Concomitant]
  6. MULTI-VITAMIN [Concomitant]
  7. TYLENOL (CAPLET) [Concomitant]

REACTIONS (2)
  - INTERNATIONAL NORMALISED RATIO INCREASED [None]
  - MASTECTOMY [None]
